FAERS Safety Report 5751146-7 (Version None)
Quarter: 2008Q2

REPORT INFORMATION
  Report Type: 
  Country: None (occurrence: None)
  Receive Date: 20080523
  Receipt Date: 20070410
  Transmission Date: 20081010
  Serious: Yes (Hospitalization)
  Sender: FDA-Public Use
  Company Number: E2090-00213-SPO-US

PATIENT
  Age: 50 Year
  Sex: Female

DRUGS (2)
  1. ZONEGRAN [Suspect]
     Indication: CONVULSION
     Dosage: TITRATED UP TO 300 MG DAILY, ORAL; VARIED DAILY DOSES FROM 200 MG DAILY - 400 MG DAILY, ORAL
     Route: 048
  2. PRIMIDONE [Concomitant]

REACTIONS (1)
  - PSYCHOTIC DISORDER [None]
